FAERS Safety Report 15835376 (Version 2)
Quarter: 2019Q1

REPORT INFORMATION
  Report Type: Report from Study
  Country: DE (occurrence: DE)
  Receive Date: 20190117
  Receipt Date: 20190122
  Transmission Date: 20190417
  Serious: Yes (Hospitalization, Other)
  Sender: FDA-Public Use
  Company Number: DE-BRISTOL-MYERS SQUIBB COMPANY-BMS-2018-017257

PATIENT
  Age: 79 Year
  Sex: Male

DRUGS (1)
  1. NIVOLUMAB [Suspect]
     Active Substance: NIVOLUMAB
     Indication: SQUAMOUS CELL CARCINOMA OF HEAD AND NECK
     Dosage: 3 MG/KG, Q2WK
     Route: 042
     Dates: start: 20171121, end: 20180912

REACTIONS (6)
  - Pleural effusion [Not Recovered/Not Resolved]
  - Pneumonitis [Not Recovered/Not Resolved]
  - Dyspnoea [Not Recovered/Not Resolved]
  - Skin lesion [Recovered/Resolved]
  - Weight decreased [Recovered/Resolved]
  - Skin ulcer [Not Recovered/Not Resolved]

NARRATIVE: CASE EVENT DATE: 20171226
